FAERS Safety Report 6546301-2 (Version None)
Quarter: 2010Q1

REPORT INFORMATION
  Report Type: 
  Country: None (occurrence: None)
  Receive Date: 20100122
  Receipt Date: 20100118
  Transmission Date: 20100710
  Serious: Yes (Life-Threatening, Hospitalization, Disabling)
  Sender: FDA-Public Use
  Company Number: AR-ROCHE-672781

PATIENT
  Sex: Female
  Weight: 38 kg

DRUGS (7)
  1. TOCILIZUMAB [Suspect]
     Indication: RHEUMATOID ARTHRITIS
     Dosage: DOSE AS 4/8 MG. FORM AS VIALS.
     Route: 042
     Dates: start: 20070301
  2. TOCILIZUMAB [Suspect]
     Route: 042
     Dates: end: 20090716
  3. TOCILIZUMAB [Suspect]
     Route: 042
     Dates: end: 20090813
  4. TOCILIZUMAB [Suspect]
     Route: 042
     Dates: end: 20090910
  5. TOCILIZUMAB [Suspect]
     Route: 042
     Dates: end: 20091013
  6. TOCILIZUMAB [Suspect]
     Dosage: DOSE AS 4/8 MG
     Route: 042
     Dates: end: 20091105
  7. METHOTREXATE [Suspect]
     Indication: RHEUMATOID ARTHRITIS
     Dosage: THE PATIENT WAS PREVIOUSLY ENROLLED IN WA17824, DOSE:15,FREQUENCY: QS.
     Route: 048

REACTIONS (1)
  - OESOPHAGEAL NEOPLASM [None]
